FAERS Safety Report 6480325-9 (Version None)
Quarter: 2009Q4

REPORT INFORMATION
  Report Type: 
  Country: None (occurrence: None)
  Receive Date: 20091208
  Receipt Date: 20091204
  Transmission Date: 20100525
  Serious: Yes (Other)
  Sender: FDA-Public Use
  Company Number: US-BAYER-200930708NA

PATIENT
  Age: 35 Year
  Sex: Female

DRUGS (1)
  1. YAZ [Suspect]
     Indication: CONTRACEPTION
     Dates: start: 20090201, end: 20090701

REACTIONS (5)
  - DYSMENORRHOEA [None]
  - MAJOR DEPRESSION [None]
  - RASH GENERALISED [None]
  - SUICIDAL IDEATION [None]
  - VAGINAL HAEMORRHAGE [None]
